FAERS Safety Report 18565927 (Version 1)
Quarter: 2020Q4

REPORT INFORMATION
  Report Type: Spontaneous
  Country: DE (occurrence: DE)
  Receive Date: 20201201
  Receipt Date: 20201201
  Transmission Date: 20210114
  Serious: Yes (Other)
  Sender: FDA-Public Use
  Company Number: DE-PFIZER INC-2020470816

PATIENT
  Age: 5 Decade
  Sex: Female

DRUGS (1)
  1. PREGABALIN. [Suspect]
     Active Substance: PREGABALIN
     Indication: NEURALGIA
     Dosage: UNK
     Route: 048
     Dates: start: 202010

REACTIONS (2)
  - Illusion [Not Recovered/Not Resolved]
  - Multiple sclerosis relapse [Unknown]

NARRATIVE: CASE EVENT DATE: 202011
